FAERS Safety Report 7725334-4 (Version None)
Quarter: 2011Q3

REPORT INFORMATION
  Report Type: 
  Country: None (occurrence: None)
  Receive Date: 20110829
  Receipt Date: 20110811
  Transmission Date: 20111222
  Serious: Yes (Other)
  Sender: FDA-Public Use
  Company Number: ACO_23614_2011

PATIENT
  Age: 49 Year
  Sex: Female

DRUGS (7)
  1. METFORMIN HCL [Concomitant]
  2. PAROXETINE HCL [Concomitant]
  3. GABAPENTIN [Concomitant]
  4. SPIRONOLACTONE [Concomitant]
  5. TIZANIDINE HYDROCHLORIDE [Suspect]
  6. OMEPRAZOLE [Concomitant]
  7. ATORVASTATIN [Concomitant]

REACTIONS (13)
  - GAIT DISTURBANCE [None]
  - HYPERREFLEXIA [None]
  - MONOPARESIS [None]
  - BALANCE DISORDER [None]
  - VISUAL ACUITY REDUCED [None]
  - HYPERTONIA [None]
  - COORDINATION ABNORMAL [None]
  - GLYCOGEN STORAGE DISEASE TYPE IV [None]
  - PAIN IN EXTREMITY [None]
  - PYRAMIDAL TRACT SYNDROME [None]
  - CEREBRAL DISORDER [None]
  - FALL [None]
  - PARAESTHESIA [None]
